FAERS Safety Report 8434214-0 (Version None)
Quarter: 2012Q2

REPORT INFORMATION
  Report Type: 
  Country: None (occurrence: None)
  Receive Date: 20120613
  Receipt Date: 20120608
  Transmission Date: 20120825
  Serious: Yes (Congenital Anomaly)
  Sender: FDA-Public Use
  Company Number: GXKR2012DE001954

PATIENT

DRUGS (1)
  1. FLUOXETINE [Suspect]
     Dosage: MATERNAL DOSE: 10 MG, QD (GW 0-8)
     Route: 064

REACTIONS (2)
  - POTTER'S SYNDROME [None]
  - FOETAL EXPOSURE DURING PREGNANCY [None]
